FAERS Safety Report 6509272-0 (Version None)
Quarter: 2009Q4

REPORT INFORMATION
  Report Type: 
  Country: None (occurrence: None)
  Receive Date: 20091222
  Receipt Date: 20091215
  Transmission Date: 20100525
  Serious: Yes (Other)
  Sender: FDA-Public Use
  Company Number: US-BIOGENIDEC-2007BI012451

PATIENT
  Age: 61 Year
  Sex: Female

DRUGS (4)
  1. AVONEX [Suspect]
     Indication: MULTIPLE SCLEROSIS
     Route: 030
     Dates: start: 20020813
  2. AVONEX [Suspect]
     Route: 030
  3. ORAL CONTRACEPTIVES [Concomitant]
  4. ADVIL [Concomitant]
     Indication: BACK PAIN

REACTIONS (3)
  - BACK PAIN [None]
  - BREAST CANCER IN SITU [None]
  - CONSTIPATION [None]
